FAERS Safety Report 15894019 (Version 1)
Quarter: 2019Q1

REPORT INFORMATION
  Report Type: Spontaneous
  Country: FR (occurrence: FR)
  Receive Date: 20190131
  Receipt Date: 20190131
  Transmission Date: 20190417
  Serious: Yes (Hospitalization)
  Sender: FDA-Public Use
  Company Number: FR-ACCORD-104747

PATIENT
  Age: 44 Year
  Sex: Female
  Weight: 53 kg

DRUGS (6)
  1. DOCETAXEL ACCORD [Suspect]
     Active Substance: DOCETAXEL
     Indication: BREAST CANCER
     Route: 041
  2. CYCLOPHOSPHAMIDE SANDOZ [Suspect]
     Active Substance: CYCLOPHOSPHAMIDE
     Indication: BREAST CANCER
     Route: 041
  3. ONDANSETRON ACCORD [Concomitant]
     Active Substance: ONDANSETRON
     Indication: ADJUVANT THERAPY
     Route: 042
     Dates: start: 20180124, end: 20180124
  4. MEDROL [Concomitant]
     Active Substance: METHYLPREDNISOLONE
     Indication: ADJUVANT THERAPY
     Route: 048
     Dates: start: 20180123, end: 20180126
  5. POLARAMINE [Concomitant]
     Active Substance: DEXCHLORPHENIRAMINE MALEATE
     Indication: ADJUVANT THERAPY
     Route: 041
  6. AZANTAC [Concomitant]
     Active Substance: RANITIDINE HYDROCHLORIDE
     Indication: PREMEDICATION
     Route: 042

REACTIONS (3)
  - Infusion related reaction [Recovered/Resolved]
  - Eye pruritus [Recovered/Resolved]
  - Throat irritation [Recovered/Resolved]

NARRATIVE: CASE EVENT DATE: 20180124
